FAERS Safety Report 23635407 (Version 1)
Quarter: 2024Q1

REPORT INFORMATION
  Report Type: Spontaneous
  Country: US (occurrence: US)
  Receive Date: 20240315
  Receipt Date: 20240315
  Transmission Date: 20240410
  Serious: Yes (Hospitalization)
  Sender: FDA-Public Use
  Company Number: US-DRL-USA-LIT/USA/24/0004199

PATIENT
  Age: 49 Year
  Sex: Male

DRUGS (4)
  1. AMIODARONE [Suspect]
     Active Substance: AMIODARONE
     Indication: Hypotension
  2. DOBUTAMINE [Suspect]
     Active Substance: DOBUTAMINE HYDROCHLORIDE
     Indication: Hypotension
  3. VASOPRESSIN [Suspect]
     Active Substance: VASOPRESSIN
     Indication: Hypotension
  4. NOREPINEPHRINE [Suspect]
     Active Substance: NOREPINEPHRINE\NOREPINEPHRINE BITARTRATE
     Indication: Hypotension
     Route: 042

REACTIONS (1)
  - Drug ineffective [Unknown]
